FAERS Safety Report 23852970 (Version 2)
Quarter: 2024Q2

REPORT INFORMATION
  Report Type: Spontaneous
  Country: US (occurrence: US)
  Receive Date: 20240514
  Receipt Date: 20240516
  Transmission Date: 20240716
  Serious: No
  Sender: FDA-Public Use
  Company Number: US-ELI_LILLY_AND_COMPANY-US202405005813

PATIENT
  Age: 58 Year
  Sex: Female

DRUGS (2)
  1. MOUNJARO [Suspect]
     Active Substance: TIRZEPATIDE
     Indication: Weight control
     Dosage: 25 U, WEEKLY (1/W)
     Route: 058
  2. MOUNJARO [Suspect]
     Active Substance: TIRZEPATIDE
     Indication: Thyroid disorder
     Dosage: 25 U, WEEKLY (1/W)
     Route: 058

REACTIONS (5)
  - Product tampering [Unknown]
  - Off label use [Unknown]
  - Abdominal distension [Unknown]
  - Gastrointestinal hypomotility [Unknown]
  - Abdominal pain upper [Unknown]
